FAERS Safety Report 20750164 (Version 1)
Quarter: 2022Q2

REPORT INFORMATION
  Report Type: Spontaneous
  Country: US (occurrence: US)
  Receive Date: 20220426
  Receipt Date: 20220426
  Transmission Date: 20220720
  Serious: No
  Sender: FDA-Public Use
  Company Number: US-drreddys-SPO/USA/22/0149236

PATIENT
  Age: 17 Year
  Sex: Female

DRUGS (3)
  1. ACCUTANE [Suspect]
     Active Substance: ISOTRETINOIN
     Indication: Product used for unknown indication
     Dosage: RMA ISSUE DATE: 31 AUGUST 2021 02:29:09 PM
  2. ACCUTANE [Suspect]
     Active Substance: ISOTRETINOIN
     Dosage: RMA ISSUE DATE: 4 OCTOBER 2021 04:32:18 PM
  3. ACCUTANE [Suspect]
     Active Substance: ISOTRETINOIN
     Dosage: RMA ISSUE DATE: 26 OCTOBER 2021 05:05:13 PM, 29 NOVEMBER 2021 01:18:03 PM, 21 DECEMBER 2021 11:19:50

REACTIONS (1)
  - Treatment noncompliance [Unknown]
